FAERS Safety Report 13709711 (Version 1)
Quarter: 2017Q3

REPORT INFORMATION
  Report Type: Spontaneous
  Country: US (occurrence: US)
  Receive Date: 20170703
  Receipt Date: 20170703
  Transmission Date: 20171127
  Serious: Yes (Other)
  Sender: FDA-Public Use
  Company Number: US-SUN PHARMACEUTICAL INDUSTRIES LTD-2017US-144155

PATIENT
  Age: 54 Year
  Sex: Female

DRUGS (1)
  1. CLINDAMYCIN. [Suspect]
     Active Substance: CLINDAMYCIN
     Indication: ORAL SURGERY
     Dosage: 300 MG, TID
     Route: 048
     Dates: start: 20170613, end: 20170618

REACTIONS (6)
  - Swelling [Recovering/Resolving]
  - Dysgeusia [Recovering/Resolving]
  - Swollen tongue [Recovering/Resolving]
  - Rash [Recovering/Resolving]
  - Tremor [Recovering/Resolving]
  - Swelling face [Recovering/Resolving]

NARRATIVE: CASE EVENT DATE: 20170613
